FAERS Safety Report 4917548-3 (Version None)
Quarter: 2006Q1

REPORT INFORMATION
  Report Type: 
  Country: None (occurrence: None)
  Receive Date: 20060221
  Receipt Date: 20050831
  Transmission Date: 20060701
  Serious: Yes (Hospitalization)
  Sender: FDA-Public Use
  Company Number: US-MERCK-0509USA00193

PATIENT
  Age: 65 Year
  Sex: Male
  Weight: 77 kg

DRUGS (18)
  1. VIOXX [Suspect]
     Indication: BACK PAIN
     Route: 048
     Dates: start: 20000101, end: 20030101
  2. CARDIZEM CD [Concomitant]
     Route: 065
     Dates: end: 20021210
  3. CARDIZEM CD [Concomitant]
     Route: 065
     Dates: start: 20021211
  4. ALBUTEROL [Concomitant]
     Route: 065
  5. ASPIRIN [Concomitant]
     Route: 065
  6. ASPIRIN [Concomitant]
     Route: 065
     Dates: start: 20020901
  7. ZANTAC [Concomitant]
     Route: 065
  8. ZOCOR [Concomitant]
     Route: 048
     Dates: start: 20021211
  9. DIGOXIN [Concomitant]
     Route: 065
     Dates: start: 20020901
  10. ALTACE [Concomitant]
     Route: 065
     Dates: start: 20020901
  11. DARVOCET-N 50 [Concomitant]
     Route: 065
     Dates: start: 20020901
  12. LORCET-HD [Concomitant]
     Route: 065
     Dates: start: 20020901
  13. PERI-COLACE [Concomitant]
     Route: 065
     Dates: start: 20020901
  14. VITAMINS (UNSPECIFIED) [Concomitant]
     Route: 065
     Dates: start: 20020901
  15. FOLIC ACID [Concomitant]
     Route: 065
     Dates: start: 20020901
  16. LASIX [Concomitant]
     Route: 065
  17. ALDACTONE [Concomitant]
     Route: 065
  18. VASOTEC RPD [Concomitant]
     Route: 048

REACTIONS (15)
  - ANGINA UNSTABLE [None]
  - ANXIETY [None]
  - CARDIAC DISORDER [None]
  - CARDIAC FAILURE CONGESTIVE [None]
  - CEREBROVASCULAR ACCIDENT [None]
  - CONFUSIONAL STATE [None]
  - DEPRESSION [None]
  - EMOTIONAL DISTRESS [None]
  - FATIGUE [None]
  - HYPOTENSION [None]
  - LUNG INJURY [None]
  - MYOCARDIAL INFARCTION [None]
  - PLEURAL EFFUSION [None]
  - PULMONARY TOXICITY [None]
  - WHITE BLOOD CELL COUNT INCREASED [None]
